FAERS Safety Report 13330207 (Version 1)
Quarter: 2017Q1

REPORT INFORMATION
  Report Type: Spontaneous
  Country: CA (occurrence: CA)
  Receive Date: 20170314
  Receipt Date: 20170314
  Transmission Date: 20170428
  Serious: Yes (Other)
  Sender: FDA-Public Use
  Company Number: CA-TEVA-747777ACC

PATIENT
  Age: 7 Year
  Sex: Female
  Weight: 21 kg

DRUGS (9)
  1. MERCAPTOPURINE. [Concomitant]
     Active Substance: MERCAPTOPURINE
  2. METHOTREXATE INJECTION, USP [Concomitant]
     Active Substance: METHOTREXATE
  3. METHOTREXATE INJECTION, USP [Concomitant]
     Active Substance: METHOTREXATE
  4. VINCRISTINE SULFATE. [Suspect]
     Active Substance: VINCRISTINE SULFATE
     Route: 042
  5. ASPARAGINASE (E.COLI) [Concomitant]
     Active Substance: ASPARAGINASE
  6. L-ASPARAGINASE [Concomitant]
     Active Substance: ASPARAGINASE
  7. METHOTREXATE INJECTION, USP [Concomitant]
     Active Substance: METHOTREXATE
  8. CYTARABINE INJECTION [Concomitant]
     Active Substance: CYTARABINE
  9. DOXORUBICIN HYDROCHLORIDE INJECTION [Concomitant]
     Active Substance: DOXORUBICIN HYDROCHLORIDE

REACTIONS (1)
  - Ototoxicity [Recovered/Resolved]
